FAERS Safety Report 8459564-3 (Version None)
Quarter: 2012Q2

REPORT INFORMATION
  Report Type: 
  Country: None (occurrence: None)
  Receive Date: 20120622
  Receipt Date: 20120612
  Transmission Date: 20120825
  Serious: Yes (Hospitalization)
  Sender: FDA-Public Use
  Company Number: FR-JNJFOC-20120606974

PATIENT
  Age: 58 Year
  Sex: Male

DRUGS (7)
  1. REMICADE [Suspect]
     Route: 042
     Dates: start: 20080101
  2. METHOTREXATE [Suspect]
     Route: 048
     Dates: start: 20080101
  3. REMICADE [Suspect]
     Indication: PSORIATIC ARTHROPATHY
     Dosage: 79TH INFUSION
     Route: 042
     Dates: start: 20110601
  4. REMICADE [Suspect]
     Route: 042
     Dates: start: 20010101
  5. METHOTREXATE [Suspect]
     Indication: PSORIATIC ARTHROPATHY
     Route: 048
     Dates: start: 20010101
  6. ZOLEDRONOC ACID [Suspect]
     Indication: PRODUCT USED FOR UNKNOWN INDICATION
     Route: 042
     Dates: start: 20080101
  7. AREDIA [Suspect]
     Indication: PRODUCT USED FOR UNKNOWN INDICATION
     Route: 042
     Dates: end: 20080101

REACTIONS (1)
  - BRAIN NEOPLASM [None]
